FAERS Safety Report 19267814 (Version 3)
Quarter: 2021Q2

REPORT INFORMATION
  Report Type: Report from Study
  Country: None (occurrence: ES)
  Receive Date: 20210518
  Receipt Date: 20210529
  Transmission Date: 20210717
  Serious: Yes (Other)
  Sender: FDA-Public Use
  Company Number: ES-ABBVIE-21K-144-3897940-00

PATIENT
  Age: 76 Year
  Sex: Male
  Weight: 75 kg

DRUGS (2)
  1. DUODOPA [Suspect]
     Active Substance: CARBIDOPA\LEVODOPA
     Indication: PARKINSON^S DISEASE
     Route: 050
     Dates: start: 20210420, end: 20210517
  2. DUODOPA [Suspect]
     Active Substance: CARBIDOPA\LEVODOPA
     Dosage: CONTINUOUS AND EXTRA DOSES INCREASED
     Route: 050
     Dates: start: 20210517

REACTIONS (6)
  - Pain in extremity [Recovering/Resolving]
  - Cataract [Recovered/Resolved]
  - Therapeutic product effect decreased [Unknown]
  - On and off phenomenon [Not Recovered/Not Resolved]
  - Limb discomfort [Unknown]
  - Freezing phenomenon [Recovering/Resolving]

NARRATIVE: CASE EVENT DATE: 2021
